FAERS Safety Report 6689101-5 (Version None)
Quarter: 2010Q2

REPORT INFORMATION
  Report Type: 
  Country: None (occurrence: None)
  Receive Date: 20100420
  Receipt Date: 20100416
  Transmission Date: 20101027
  Serious: Yes (Life-Threatening)
  Sender: FDA-Public Use
  Company Number: JP-WYE-H14632910

PATIENT
  Age: 60 Year
  Sex: Male

DRUGS (1)
  1. ZOSYN [Suspect]
     Indication: PNEUMONIA BACTERIAL
     Route: 041
     Dates: start: 20100301, end: 20100413

REACTIONS (1)
  - LIVER DISORDER [None]
